FAERS Safety Report 6680245 (Version 3)
Quarter: 2012Q4

REPORT INFORMATION
  Report Type: 
  Country: US (occurrence: US)
  Receive Date: 20080625
  Receipt Date: 20121220
  Transmission Date: 20130627
  Serious: Yes (Hospitalization, Other)
  Sender: FDA-Public Use
  Company Number: US-ASTRAZENECA-2007UW20811

PATIENT
  Age: 77 Year
  Sex: Female
  Weight: 55.3 kg

DRUGS (5)
  1. PULMICORT FLEXHALER [Suspect]
     Indication: ASTHMA
     Dosage: 180 MCG 2 INHALATIONS TWICE DAILY
     Route: 055
     Dates: end: 2012
  2. PULMICORT FLEXHALER [Suspect]
     Indication: ASTHMA
     Route: 055
     Dates: start: 2012
  3. SORIATANE [Concomitant]
  4. BLOOD PRESSURE MEDICATION [Concomitant]
     Indication: BLOOD PRESSURE ABNORMAL
  5. PLAVIX [Concomitant]

REACTIONS (12)
  - Pertussis [Unknown]
  - Myocardial infarction [Unknown]
  - Dyspnoea [Unknown]
  - Asthenia [Unknown]
  - Condition aggravated [Unknown]
  - Malaise [Unknown]
  - Asthma [Not Recovered/Not Resolved]
  - Tracheitis [Not Recovered/Not Resolved]
  - Sputum discoloured [Unknown]
  - Weight decreased [Unknown]
  - Hypophagia [Unknown]
  - Incorrect dose administered [Unknown]
